FAERS Safety Report 7207959-8 (Version None)
Quarter: 2011Q1

REPORT INFORMATION
  Report Type: 
  Country: None (occurrence: None)
  Receive Date: 20110104
  Receipt Date: 20101227
  Transmission Date: 20110831
  Serious: Yes (Other)
  Sender: FDA-Public Use
  Company Number: JP-PFIZER INC-2010161922

PATIENT
  Age: 49 Year
  Sex: Male

DRUGS (9)
  1. GANCICLOVIR [Concomitant]
     Dosage: UNK
     Route: 047
     Dates: start: 20081225, end: 20100512
  2. BIMATOPROST [Suspect]
     Indication: CORNEAL ENDOTHELIITIS
     Dosage: 1 DROP/DAY
     Route: 047
     Dates: start: 20100121, end: 20100217
  3. VALGANCICLOVIR HYDROCHLORIDE [Concomitant]
     Dosage: UNK
     Route: 048
     Dates: start: 20090226, end: 20100512
  4. BETAMETHASONE SODIUM PHOSPHATE [Concomitant]
     Dosage: UNK
     Route: 047
     Dates: start: 20081001, end: 20100512
  5. FLUOROMETHOLONE [Concomitant]
     Dosage: UNK
     Dates: start: 20081225, end: 20091203
  6. DORZOLAMIDE HYDROCHLORIDE [Concomitant]
     Dosage: UNK
     Route: 047
     Dates: end: 20100512
  7. XALATAN [Suspect]
     Indication: CORNEAL ENDOTHELIITIS
     Dosage: 1 DROP/DAY
     Route: 047
     Dates: start: 20091104, end: 20091203
  8. TRAVOPROST [Suspect]
     Indication: CORNEAL ENDOTHELIITIS
     Dosage: 1 DROP/DAY
     Route: 047
     Dates: start: 20100217, end: 20100324
  9. FLUOROMETHOLONE [Concomitant]
     Dosage: UNK
     Dates: start: 20100217, end: 20100324

REACTIONS (1)
  - INTRAOCULAR PRESSURE INCREASED [None]
